FAERS Safety Report 12782119 (Version 1)
Quarter: 2016Q3

REPORT INFORMATION
  Report Type: Spontaneous
  Country: US (occurrence: US)
  Receive Date: 20160923
  Receipt Date: 20160923
  Transmission Date: 20161109
  Serious: No
  Sender: FDA-Public Use
  Company Number: None

PATIENT
  Age: 57 Year
  Sex: Male

DRUGS (2)
  1. COSENTYX [Suspect]
     Active Substance: SECUKINUMAB
     Indication: PSORIATIC ARTHROPATHY
     Route: 058
     Dates: start: 20160722
  2. COSENTYX [Suspect]
     Active Substance: SECUKINUMAB
     Indication: ESSENTIAL HYPERTENSION
     Route: 058
     Dates: start: 20160722

REACTIONS (2)
  - Dysuria [None]
  - Psoriatic arthropathy [None]

NARRATIVE: CASE EVENT DATE: 20160923
